FAERS Safety Report 9321930 (Version 2)
Quarter: 2013Q2

REPORT INFORMATION
  Report Type: Spontaneous
  Country: US (occurrence: US)
  Receive Date: 20130531
  Receipt Date: 20130605
  Transmission Date: 20140414
  Serious: Yes (Death, Hospitalization)
  Sender: FDA-Public Use
  Company Number: US-PFIZER INC-2012009218

PATIENT
  Age: 69 Year
  Sex: Female

DRUGS (3)
  1. LIPITOR [Suspect]
     Dosage: 80 MG, UNK
  2. PROTONIX [Suspect]
     Dosage: 40 MG, DAILY
  3. CALAN [Suspect]
     Dosage: 240 MG, 1X/DAY

REACTIONS (1)
  - Gastrointestinal obstruction [Fatal]
